FAERS Safety Report 24223277 (Version 4)
Quarter: 2024Q3

REPORT INFORMATION
  Report Type: Spontaneous
  Country: FR (occurrence: FR)
  Receive Date: 20240819
  Receipt Date: 20240830
  Transmission Date: 20241016
  Serious: Yes (Hospitalization)
  Sender: PFIZER
  Company Number: None

PATIENT
  Age: 51 Year
  Sex: Female
  Weight: 82 kg

DRUGS (5)
  1. ADCETRIS [Suspect]
     Active Substance: BRENTUXIMAB VEDOTIN
     Indication: Hodgkin^s disease
     Dosage: 144 MG
     Route: 042
     Dates: start: 20240711, end: 20240711
  2. NAVELBINE [Suspect]
     Active Substance: VINORELBINE TARTRATE
     Indication: Hodgkin^s disease
     Dosage: 38.8 MG, AT D1 AND D8
     Route: 042
     Dates: start: 20240711, end: 20240718
  3. DOXORUBICIN HYDROCHLORIDE [Suspect]
     Active Substance: DOXORUBICIN HYDROCHLORIDE
     Indication: Hodgkin^s disease
     Dosage: 29.1 MG AT DAY 1 AND DAY 8
     Route: 042
     Dates: start: 20240711, end: 20240718
  4. GEMCITABINE\GEMCITABINE HYDROCHLORIDE [Suspect]
     Active Substance: GEMCITABINE\GEMCITABINE HYDROCHLORIDE
     Indication: Hodgkin^s disease
     Dosage: 1940 MG AT DAY 1 AND DAY 8
     Route: 042
     Dates: start: 20240711, end: 20240718
  5. BACTRIM [Concomitant]
     Active Substance: SULFAMETHOXAZOLE\TRIMETHOPRIM
     Indication: Antibiotic prophylaxis
     Dosage: UNK
     Dates: start: 20240718

REACTIONS (3)
  - Neutropenia [Recovered/Resolved]
  - Hepatitis [Recovered/Resolved]
  - Colitis [Recovered/Resolved]

NARRATIVE: CASE EVENT DATE: 20240718
